FAERS Safety Report 15385275 (Version 1)
Quarter: 2018Q3

REPORT INFORMATION
  Report Type: Spontaneous
  Country: US (occurrence: US)
  Receive Date: 20180914
  Receipt Date: 20180914
  Transmission Date: 20181010
  Serious: No
  Sender: FDA-Public Use
  Company Number: US-SA-2018SA256016

PATIENT

DRUGS (1)
  1. RIFADIN [Suspect]
     Active Substance: RIFAMPIN
     Dosage: 150 MG, BID
     Dates: start: 201808

REACTIONS (3)
  - Pruritus [Unknown]
  - Rash [Unknown]
  - Rash macular [Unknown]
